FAERS Safety Report 9736387 (Version 1)
Quarter: 2013Q4

REPORT INFORMATION
  Report Type: Spontaneous
  Country: US (occurrence: US)
  Receive Date: 20131206
  Receipt Date: 20131206
  Transmission Date: 20140711
  Serious: No
  Sender: FDA-Public Use
  Company Number: US-B.I. PHARMACEUTICALS,INC./RIDGEFIELD-2013-BI-39008BP

PATIENT
  Age: 69 Year
  Sex: Female

DRUGS (6)
  1. COMBIVENT [Suspect]
     Indication: CHRONIC OBSTRUCTIVE PULMONARY DISEASE
     Dosage: DOSE STRENGTH: 20 MCG / 100 MCG;
     Route: 055
     Dates: start: 201309
  2. COMBIVENT [Suspect]
     Indication: ASTHMA
  3. COMBIVENT INHALATION AEROSOL [Concomitant]
     Indication: CHRONIC OBSTRUCTIVE PULMONARY DISEASE
     Route: 055
  4. COMBIVENT INHALATION AEROSOL [Concomitant]
     Indication: ASTHMA
  5. ADVAIR [Concomitant]
     Indication: CHRONIC OBSTRUCTIVE PULMONARY DISEASE
     Route: 055
  6. ADVAIR [Concomitant]
     Indication: ASTHMA

REACTIONS (1)
  - Eyelids pruritus [Not Recovered/Not Resolved]
